FAERS Safety Report 8198523-5 (Version None)
Quarter: 2012Q1

REPORT INFORMATION
  Report Type: 
  Country: None (occurrence: None)
  Receive Date: 20120309
  Receipt Date: 20120103
  Transmission Date: 20120608
  Serious: No
  Sender: FDA-Public Use
  Company Number: US-AMGEN-USASP2012000080

PATIENT
  Age: 77 Year
  Sex: Female

DRUGS (6)
  1. TIAZAC [Concomitant]
  2. COZAAR [Concomitant]
  3. VITAMIN D [Concomitant]
     Dosage: 1 MG, QD
  4. PROLIA [Suspect]
     Indication: PRODUCT USED FOR UNKNOWN INDICATION
     Dosage: UNK UNK, Q6MO
     Dates: start: 20110601
  5. VYTORIN [Concomitant]
  6. NEXIUM [Concomitant]

REACTIONS (7)
  - HOT FLUSH [None]
  - CHILLS [None]
  - ASTHENIA [None]
  - FEELING COLD [None]
  - DISCOMFORT [None]
  - CYSTITIS [None]
  - BONE PAIN [None]
